FAERS Safety Report 13039493 (Version 1)
Quarter: 2016Q4

REPORT INFORMATION
  Report Type: Spontaneous
  Country: US (occurrence: US)
  Receive Date: 20161219
  Receipt Date: 20161219
  Transmission Date: 20170207
  Serious: No
  Sender: FDA-Public Use
  Company Number: None

PATIENT
  Age: 59 Year
  Sex: Male
  Weight: 76.5 kg

DRUGS (3)
  1. MUCUNA L-DOPA [Concomitant]
  2. TAMIFLU [Suspect]
     Active Substance: OSELTAMIVIR PHOSPHATE
     Indication: INFLUENZA
     Dosage: QUANTITY:10 CAPSULE(S); TWICE A DAY; ORAL?
     Route: 048
     Dates: start: 20161215, end: 20161217
  3. SELEGILINE HYDROCHLORIDE. [Concomitant]
     Active Substance: SELEGILINE HYDROCHLORIDE

REACTIONS (6)
  - Abnormal dreams [None]
  - Hallucination [None]
  - Insomnia [None]
  - Anxiety [None]
  - Sleep disorder [None]
  - Rash pruritic [None]

NARRATIVE: CASE EVENT DATE: 20161217
